FAERS Safety Report 6451597-1 (Version None)
Quarter: 2009Q4

REPORT INFORMATION
  Report Type: 
  Country: None (occurrence: None)
  Receive Date: 20091123
  Receipt Date: 20091109
  Transmission Date: 20100525
  Serious: Yes (Life-Threatening, Hospitalization, Disabling)
  Sender: FDA-Public Use
  Company Number: PHHO2009LB12562

PATIENT
  Age: 42 Year
  Sex: Male
  Weight: 80 kg

DRUGS (7)
  1. RAD 666 RAD+TAB [Suspect]
     Indication: METASTATIC RENAL CELL CARCINOMA
     Dosage: 10 MG DAILY
     Route: 048
     Dates: start: 20090824, end: 20091012
  2. LEVOTHYROXINE SODIUM [Concomitant]
     Indication: HYPOTHYROIDISM
  3. COLCHICINE [Concomitant]
     Indication: FAMILIAL MEDITERRANEAN FEVER
  4. NSAID'S [Concomitant]
     Indication: BACK PAIN
  5. PROFENAL [Concomitant]
  6. COLCHICINE [Concomitant]
  7. ELTROXIN ^GLAXO^ [Concomitant]

REACTIONS (3)
  - CEREBRAL HAEMORRHAGE [None]
  - HAEMORRHAGIC STROKE [None]
  - HEMIPLEGIA [None]
